FAERS Safety Report 9723579 (Version 1)
Quarter: 2013Q4

REPORT INFORMATION
  Report Type: Spontaneous
  Country: US (occurrence: US)
  Receive Date: 20131202
  Receipt Date: 20131202
  Transmission Date: 20140711
  Serious: Yes (Other)
  Sender: FDA-Public Use
  Company Number: US-PFIZER INC-2013340216

PATIENT
  Age: 3 Year
  Sex: Female

DRUGS (3)
  1. DILANTIN-125 [Suspect]
     Indication: CONVULSION
     Dosage: UNK
  2. TRILEPTAL [Suspect]
     Indication: CONVULSION
     Dosage: UNK
  3. DIASTAT [Suspect]
     Indication: CONVULSION

REACTIONS (4)
  - Abasia [Unknown]
  - Faecal incontinence [Unknown]
  - Depressed mood [Unknown]
  - Crying [Unknown]
